FAERS Safety Report 9961328 (Version 3)
Quarter: 2014Q1

REPORT INFORMATION
  Report Type: Spontaneous
  Country: US (occurrence: US)
  Receive Date: 20140305
  Receipt Date: 20140318
  Transmission Date: 20141002
  Serious: Yes (Hospitalization)
  Sender: FDA-Public Use
  Company Number: US-BAYER-2014-031424

PATIENT
  Age: 21 Year
  Sex: Female
  Weight: 68.03 kg

DRUGS (5)
  1. TRAZODONE [Concomitant]
     Dosage: UNK
     Dates: start: 20080310
  2. LORAZEPAM [Concomitant]
     Dosage: UNK
     Dates: start: 20080310
  3. MIRENA [Suspect]
     Indication: CONTRACEPTION
     Dosage: 20 MCG/24HR, CONT
     Route: 015
     Dates: start: 20060404, end: 20080311
  4. PERCOCET [Concomitant]
  5. IBUPROFEN [Concomitant]

REACTIONS (11)
  - Uterine perforation [None]
  - Ectopic pregnancy with contraceptive device [None]
  - Ectopic pregnancy with contraceptive device [None]
  - Ruptured ectopic pregnancy [None]
  - Drug ineffective [None]
  - Depression [None]
  - Anxiety [None]
  - Fear of pregnancy [None]
  - Injury [None]
  - Pain [None]
  - Emotional distress [None]
